FAERS Safety Report 12153988 (Version 2)
Quarter: 2016Q2

REPORT INFORMATION
  Report Type: Spontaneous
  Country: US (occurrence: US)
  Receive Date: 20160307
  Receipt Date: 20160507
  Transmission Date: 20160815
  Serious: Yes (Other)
  Sender: FDA-Public Use
  Company Number: PHEH2016US005197

PATIENT
  Age: 44 Year
  Sex: Female
  Weight: 58.6 kg

DRUGS (1)
  1. COSENTYX [Suspect]
     Active Substance: SECUKINUMAB
     Indication: PSORIASIS
     Dosage: 150 MG, UNK
     Route: 058
     Dates: start: 20160223, end: 20160301

REACTIONS (3)
  - Headache [Recovered/Resolved]
  - Erythema [Unknown]
  - Flushing [Unknown]

NARRATIVE: CASE EVENT DATE: 20160224
